FAERS Safety Report 8211321-9 (Version None)
Quarter: 2012Q1

REPORT INFORMATION
  Report Type: 
  Country: None (occurrence: None)
  Receive Date: 20120315
  Receipt Date: 20120307
  Transmission Date: 20120608
  Serious: Yes (Hospitalization)
  Sender: FDA-Public Use
  Company Number: US-SANOFI-AVENTIS-2011SA080895

PATIENT
  Age: 73 Year
  Sex: Male
  Weight: 74.8 kg

DRUGS (11)
  1. MAGNESIUM OXIDE [Concomitant]
     Dates: start: 20031209
  2. ASPIRIN [Concomitant]
     Indication: ANTICOAGULANT THERAPY
     Dates: start: 20061205
  3. PROCARDIA XL [Concomitant]
     Dates: start: 20080624, end: 20100721
  4. NEXIUM [Concomitant]
     Dates: start: 20100722
  5. SIMVASTATIN [Concomitant]
     Dates: start: 20001204
  6. LIPITOR [Concomitant]
  7. METOPROLOL TARTRATE [Concomitant]
     Dates: start: 20031209
  8. FOLIC ACID [Concomitant]
     Dates: start: 20031209, end: 20111207
  9. PLAVIX [Suspect]
     Route: 048
     Dates: start: 20031209
  10. COREG [Concomitant]
     Dosage: DOSE:3.125 NOT APPLICABLE
     Dates: start: 20100917
  11. PLAVIX [Suspect]
     Indication: STENT PLACEMENT
     Route: 048
     Dates: start: 20031209

REACTIONS (7)
  - MYOCARDIAL INFARCTION [None]
  - CARDIOVASCULAR DISORDER [None]
  - CHEST PAIN [None]
  - CORONARY ARTERY OCCLUSION [None]
  - DRUG INEFFECTIVE [None]
  - VASCULAR OCCLUSION [None]
  - MEDICATION RESIDUE [None]
